FAERS Safety Report 18919997 (Version 2)
Quarter: 2021Q1

REPORT INFORMATION
  Report Type: Spontaneous
  Country: US (occurrence: US)
  Receive Date: 20210222
  Receipt Date: 20210326
  Transmission Date: 20210420
  Serious: No
  Sender: FDA-Public Use
  Company Number: US-AXELLIA-002968

PATIENT
  Sex: Female

DRUGS (1)
  1. VANCO READY (VANCOMYCIN) [Suspect]
     Active Substance: VANCOMYCIN
     Indication: PRODUCT USED FOR UNKNOWN INDICATION
     Dosage: ONE DOSE

REACTIONS (1)
  - Maternal exposure during pregnancy [Unknown]
